FAERS Safety Report 5299344-3 (Version None)
Quarter: 2007Q2

REPORT INFORMATION
  Report Type: 
  Country: None (occurrence: None)
  Receive Date: 20070411
  Receipt Date: 20070411
  Transmission Date: 20071010
  Serious: Yes (Other)
  Sender: FDA-Public Use
  Company Number: None

PATIENT
  Age: 45 Year
  Sex: Female
  Weight: 61.916 kg

DRUGS (1)
  1. BEVACIZUMAB [Suspect]
     Indication: NASAL SEPTUM PERFORATION
     Dosage: 10 MG/KG Q 2 WEEKS IV
     Route: 042
     Dates: start: 20060701, end: 20070319

REACTIONS (3)
  - EPISTAXIS [None]
  - NASAL SEPTUM PERFORATION [None]
  - RHINORRHOEA [None]
